FAERS Safety Report 9414786 (Version 1)
Quarter: 2013Q3

REPORT INFORMATION
  Report Type: Spontaneous
  Country: FR (occurrence: FR)
  Receive Date: 20130723
  Receipt Date: 20130723
  Transmission Date: 20140515
  Serious: Yes (Hospitalization, Other)
  Sender: FDA-Public Use
  Company Number: FR-PFIZER INC-2013211420

PATIENT
  Age: 81 Year
  Sex: Male
  Weight: 86 kg

DRUGS (9)
  1. LYRICA [Suspect]
     Indication: PAIN
     Dosage: 100 MG, 1X/DAY
     Route: 048
     Dates: start: 20130612, end: 20130702
  2. METRONIDAZOLE [Suspect]
     Indication: ERYSIPELAS
     Dosage: 500 MG, 3X/DAY
     Route: 042
     Dates: start: 20130613, end: 20130616
  3. TAHOR [Suspect]
     Indication: DYSLIPIDAEMIA
     Dosage: 40 MG, 1X/DAY
     Route: 048
     Dates: end: 20130624
  4. TAHOR [Suspect]
     Dosage: 80 MG, DAILY
     Route: 048
     Dates: start: 20130625, end: 20130625
  5. TAHOR [Suspect]
     Dosage: 40 MG, DAILY
     Dates: start: 20130626
  6. LAROXYL [Suspect]
     Indication: ANXIETY
     Dosage: 8 GTT, 1X/DAY
     Route: 048
     Dates: start: 20130612, end: 20130701
  7. AUGMENTIN [Suspect]
     Indication: ERYSIPELAS
     Dosage: 1 G, 3X/DAY
     Route: 048
     Dates: start: 20130610, end: 20130702
  8. CORVASAL [Suspect]
     Indication: ANGINA PECTORIS
     Dosage: 4 MG, 3X/DAY
     Route: 048
     Dates: start: 20130609, end: 20130621
  9. LOVENOX [Suspect]
     Dosage: UNK
     Route: 058
     Dates: start: 20130611, end: 20130702

REACTIONS (9)
  - Cholestasis [Not Recovered/Not Resolved]
  - Condition aggravated [Not Recovered/Not Resolved]
  - Oedema peripheral [Not Recovered/Not Resolved]
  - Erythema [Not Recovered/Not Resolved]
  - Arthralgia [Not Recovered/Not Resolved]
  - Peripheral ischaemia [Not Recovered/Not Resolved]
  - Erysipelas [Not Recovered/Not Resolved]
  - Skin ulcer [Not Recovered/Not Resolved]
  - Hepatocellular injury [Not Recovered/Not Resolved]
